FAERS Safety Report 9646356 (Version 3)
Quarter: 2014Q1

REPORT INFORMATION
  Report Type: Spontaneous
  Country: CH (occurrence: None)
  Receive Date: 20131024
  Receipt Date: 20140129
  Transmission Date: 20141002
  Serious: Yes (Other)
  Sender: FDA-Public Use
  Company Number: 20130553

PATIENT
  Age: 43 Year
  Sex: Female

DRUGS (2)
  1. FERINJECT [Suspect]
     Indication: PRODUCT USED FOR UNKNOWN INDICATION
     Dosage: 1000 MG IN 250 ML
     Route: 042
     Dates: start: 20130828, end: 20130828
  2. CORTICOCOSTEROIDS NOS [Concomitant]

REACTIONS (5)
  - Dyspnoea [None]
  - Swollen tongue [None]
  - Infusion related reaction [None]
  - Hypersensitivity [None]
  - Paraesthesia oral [None]
